FAERS Safety Report 9816615 (Version 2)
Quarter: 2014Q1

REPORT INFORMATION
  Report Type: Spontaneous
  Country: US (occurrence: FI)
  Receive Date: 20140114
  Receipt Date: 20140203
  Transmission Date: 20141002
  Serious: Yes (Other)
  Sender: FDA-Public Use
  Company Number: 2014SP000095

PATIENT
  Age: 50 Year
  Sex: Female

DRUGS (4)
  1. ALVESCO INHALATION AEROSOL [Suspect]
     Indication: ASTHMA
     Route: 055
     Dates: end: 20131201
  2. FLIXOTIDE [Suspect]
     Indication: PRODUCT USED FOR UNKNOWN INDICATION
  3. SEROXAT [Concomitant]
     Route: 048
     Dates: start: 2002
  4. KALCIPOS [Concomitant]
     Route: 048

REACTIONS (1)
  - Depression [Recovered/Resolved]
